FAERS Safety Report 6484355-2 (Version None)
Quarter: 2009Q4

REPORT INFORMATION
  Report Type: 
  Country: None (occurrence: None)
  Receive Date: 20091203
  Receipt Date: 20091120
  Transmission Date: 20100525
  Serious: Yes (Hospitalization)
  Sender: FDA-Public Use
  Company Number: 2007AL004832

PATIENT
  Age: 50 Year
  Sex: Male

DRUGS (4)
  1. NAPROXEN [Suspect]
     Indication: INFLAMMATION
     Dosage: 1000 MG; X1; PO
     Route: 048
     Dates: start: 20071015, end: 20071015
  2. VOLTAREN [Concomitant]
  3. PREGABALIN [Concomitant]
  4. VIAGRA [Concomitant]

REACTIONS (5)
  - CONSTIPATION [None]
  - GROIN PAIN [None]
  - MUSCLE TIGHTNESS [None]
  - PAIN [None]
  - URINARY RETENTION [None]
